FAERS Safety Report 5125259-7 (Version None)
Quarter: 2006Q4

REPORT INFORMATION
  Report Type: 
  Country: None (occurrence: None)
  Receive Date: 20061011
  Receipt Date: 20061003
  Transmission Date: 20070319
  Serious: Yes (Hospitalization)
  Sender: FDA-Public Use
  Company Number: PH-BOEHRINGER INGELHEIM PHARMACEUTICALS, INC.-2006-BP-11865YA

PATIENT
  Sex: Male

DRUGS (3)
  1. TAMSULOSIN HCL [Suspect]
     Indication: BENIGN PROSTATIC HYPERPLASIA
     Route: 048
     Dates: start: 20040529, end: 20060910
  2. TAMSULOSIN HCL [Suspect]
     Route: 048
     Dates: start: 20060913
  3. DUTASTERIDE [Suspect]
     Indication: BENIGN PROSTATIC HYPERPLASIA
     Route: 048
     Dates: start: 20040529

REACTIONS (15)
  - ABSCESS [None]
  - ANOREXIA [None]
  - AORTIC DISORDER [None]
  - ARTERIOSCLEROSIS [None]
  - ASTHENIA [None]
  - BENIGN PROSTATIC HYPERPLASIA [None]
  - BLOOD CHOLESTEROL DECREASED [None]
  - BLOOD GLUCOSE INCREASED [None]
  - BLOOD TRIGLYCERIDES DECREASED [None]
  - CALCIFICATION PANCREATIC DUCT [None]
  - HAEMOGLOBIN DECREASED [None]
  - HEPATIC MASS [None]
  - HIGH DENSITY LIPOPROTEIN DECREASED [None]
  - RENAL CYST [None]
  - TUMOUR NECROSIS [None]
